FAERS Safety Report 15752017 (Version 4)
Quarter: 2020Q1

REPORT INFORMATION
  Report Type: Spontaneous
  Country: CA (occurrence: CA)
  Receive Date: 20181221
  Receipt Date: 20200121
  Transmission Date: 20200409
  Serious: Yes (Hospitalization, Other)
  Sender: FDA-Public Use
  Company Number: CA-PFIZER INC-2018521846

PATIENT
  Age: 31 Year
  Sex: Female

DRUGS (27)
  1. CALCIUM CHLORIDE. [Suspect]
     Active Substance: CALCIUM CHLORIDE
     Dosage: 1 G, UNK
  2. SUCCINYLCHOLINE CHLORIDE. [Suspect]
     Active Substance: SUCCINYLCHOLINE CHLORIDE
     Indication: ENDOTRACHEAL INTUBATION
     Dosage: 100 MG, UNK
     Route: 042
  3. DIAZEPAM. [Suspect]
     Active Substance: DIAZEPAM
     Indication: STATUS EPILEPTICUS
     Dosage: 10 MG (TOTAL OF 55 MG  IN INCREMENTAL DOSES)
  4. PHENYTOIN. [Suspect]
     Active Substance: PHENYTOIN
     Indication: STATUS EPILEPTICUS
     Dosage: 1 G, UNK
  5. PHENYTOIN. [Suspect]
     Active Substance: PHENYTOIN
     Indication: SEIZURE
  6. METOCLOPRAMIDE. [Suspect]
     Active Substance: METOCLOPRAMIDE
     Indication: PROPHYLAXIS
     Dosage: 10 MG, UNK
     Route: 042
  7. DIAZEPAM. [Suspect]
     Active Substance: DIAZEPAM
     Indication: SEIZURE
     Dosage: UNK
     Route: 065
  8. LORAZEPAM. [Suspect]
     Active Substance: LORAZEPAM
     Indication: STATUS EPILEPTICUS
     Dosage: 2 MG, UNK
  9. THIOPENTAL SODIUM. [Suspect]
     Active Substance: THIOPENTAL SODIUM
     Dosage: UNK
     Route: 042
  10. THIOPENTAL SODIUM. [Suspect]
     Active Substance: THIOPENTAL SODIUM
     Dosage: 250 MG, UNK
     Route: 042
  11. MIDAZOLAM HYDROCHLORIDE. [Suspect]
     Active Substance: MIDAZOLAM HYDROCHLORIDE
     Indication: STATUS EPILEPTICUS
     Dosage: 3 MG, UNK
  12. SUCCINYLCHOLINE [SUXAMETHONIUM] [Suspect]
     Active Substance: SUCCINYLCHOLINE
     Indication: ENDOTRACHEAL INTUBATION
     Dosage: 100 MG, UNK
  13. DEXTROSE. [Suspect]
     Active Substance: DEXTROSE
     Dosage: 50 ML, UNK (5% INJ 5GM/100ML USP)
     Route: 042
  14. PROPOFOL. [Suspect]
     Active Substance: PROPOFOL
     Dosage: UNK
     Route: 042
  15. SODIUM CITRATE. [Suspect]
     Active Substance: SODIUM CITRATE
     Indication: PROPHYLAXIS
     Dosage: 30 ML, UNK
     Route: 048
  16. PHENYLEPHRINE [Suspect]
     Active Substance: PHENYLEPHRINE HYDROCHLORIDE
     Indication: HYPOTENSION
     Dosage: UNK
     Route: 065
  17. THIOPENTAL SODIUM. [Suspect]
     Active Substance: THIOPENTAL SODIUM
     Indication: STATUS EPILEPTICUS
     Dosage: 100 MG, UNK
     Route: 042
  18. THIOPENTAL SODIUM. [Suspect]
     Active Substance: THIOPENTAL SODIUM
     Indication: SEIZURE
     Dosage: 250 MG, UNK
     Route: 042
  19. MAGNESIUM SULFATE. [Suspect]
     Active Substance: MAGNESIUM SULFATE
     Indication: STATUS EPILEPTICUS
     Dosage: 4 G, UNK
  20. MAGNESIUM SULFATE. [Suspect]
     Active Substance: MAGNESIUM SULFATE
     Dosage: UNK
  21. PROPOFOL. [Suspect]
     Active Substance: PROPOFOL
     Indication: STATUS EPILEPTICUS
     Dosage: 200 MG, [1 EVERY 1HOUR(S)]
     Route: 042
  22. PAROXETINE. [Suspect]
     Active Substance: PAROXETINE
     Indication: BIPOLAR DISORDER
     Dosage: UNK
  23. ATIVAN [Suspect]
     Active Substance: LORAZEPAM
     Indication: BIPOLAR DISORDER
     Dosage: UNK
  24. DOPAMINE HCL [Suspect]
     Active Substance: DOPAMINE HYDROCHLORIDE
     Dosage: UNK
  25. THIOPENTAL SODIUM. [Suspect]
     Active Substance: THIOPENTAL SODIUM
     Indication: ENDOTRACHEAL INTUBATION
     Dosage: 300 MG, 1 EVERY 1 HOUR(S)
     Route: 042
  26. THIOPENTAL SODIUM. [Suspect]
     Active Substance: THIOPENTAL SODIUM
     Dosage: 100 MG, UNK
     Route: 042
  27. THIOPENTAL SODIUM. [Suspect]
     Active Substance: THIOPENTAL SODIUM
     Dosage: 300 MG, 1 EVERY 1 HOUR(S)
     Route: 042

REACTIONS (20)
  - Drug ineffective [Recovered/Resolved]
  - Oxygen saturation abnormal [Recovered/Resolved]
  - Diabetes insipidus [Unknown]
  - Foetal death [Unknown]
  - Encephalopathy [Recovered/Resolved]
  - Left ventricular dysfunction [Recovering/Resolving]
  - Blood magnesium decreased [Recovered/Resolved]
  - Renal ischaemia [Recovered/Resolved]
  - Blood bicarbonate decreased [Recovered/Resolved]
  - Blood calcium decreased [Recovered/Resolved]
  - Blood pH decreased [Recovered/Resolved]
  - Loss of consciousness [Recovered/Resolved]
  - PO2 increased [Recovered/Resolved]
  - Maternal exposure during pregnancy [Unknown]
  - PCO2 increased [Recovered/Resolved]
  - Renal impairment [Unknown]
  - Electroencephalogram abnormal [Recovered/Resolved]
  - Seizure [Recovered/Resolved]
  - Hypotension [Recovering/Resolving]
  - Status epilepticus [Recovered/Resolved]
